FAERS Safety Report 17856434 (Version 1)
Quarter: 2020Q2

REPORT INFORMATION
  Report Type: Spontaneous
  Country: US (occurrence: US)
  Receive Date: 20200603
  Receipt Date: 20200603
  Transmission Date: 20200714
  Serious: No
  Sender: FDA-Public Use
  Company Number: US-009507513-2005USA009393

PATIENT
  Age: 47 Year
  Sex: Male

DRUGS (1)
  1. INTRON A [Suspect]
     Active Substance: INTERFERON ALFA-2B
     Dosage: CONCENTRATION 25 MU; 1 MILLION UNITS
     Route: 058
     Dates: start: 20200418

REACTIONS (2)
  - Incorrect dose administered [Unknown]
  - Product leakage [Unknown]

NARRATIVE: CASE EVENT DATE: 20200418
